FAERS Safety Report 7559772-X (Version None)
Quarter: 2011Q2

REPORT INFORMATION
  Report Type: 
  Country: None (occurrence: None)
  Receive Date: 20110621
  Receipt Date: 20110613
  Transmission Date: 20111010
  Serious: Yes (Other)
  Sender: FDA-Public Use
  Company Number: DZ-ROCHE-782267

PATIENT
  Age: 54 Year
  Sex: Female

DRUGS (3)
  1. AVASTIN [Suspect]
     Dosage: FREQUENCY PER CURE, DOSE INCREASED, ROUTE INFUSION
     Route: 050
     Dates: start: 20110206, end: 20110508
  2. AVASTIN [Suspect]
     Indication: BREAST CANCER
     Route: 050
     Dates: start: 20100901
  3. NAVELBINE [Suspect]
     Indication: BREAST CANCER
     Dosage: FREQUENCY PER CURE, ROUTE INFUSION
     Route: 050
     Dates: start: 20100901, end: 20110508

REACTIONS (3)
  - GENERAL PHYSICAL CONDITION ABNORMAL [None]
  - ASTHENIA [None]
  - CHEST PAIN [None]
